FAERS Safety Report 9746315 (Version 2)
Quarter: 2013Q4

REPORT INFORMATION
  Report Type: Spontaneous
  Country: FR (occurrence: None)
  Receive Date: 20131205
  Receipt Date: 20131213
  Transmission Date: 20140711
  Serious: Yes (Hospitalization)
  Sender: FDA-Public Use
  Company Number: 2013CP000144

PATIENT
  Age: 68 Year
  Sex: Male

DRUGS (14)
  1. PERFALGAN [Suspect]
     Dosage: 1 DOSAGE FORM
     Route: 042
     Dates: start: 20130706, end: 20130726
  2. LOPERAMIDE HYDROCHLORIDE [Suspect]
     Dates: start: 20130710, end: 20130719
  3. CLINDAMYCIN (CLINDAMYCIN) [Suspect]
     Route: 042
     Dates: start: 20130722, end: 20130725
  4. METRONIDAZOLE (METRONIDAZOLE) [Suspect]
     Route: 042
     Dates: start: 20130704, end: 20130729
  5. VANCOMYCIN (VANCOMYCIN) [Suspect]
     Dates: start: 20130710, end: 20130718
  6. LASILIX /00032601/ [Concomitant]
  7. SPECIAFOLDINE [Concomitant]
  8. BROMAZEPAM [Concomitant]
  9. KARDEGIC [Concomitant]
  10. TAHOR [Concomitant]
  11. PLAVIX [Concomitant]
  12. OMEPRAZOLE [Concomitant]
  13. SYMBICORT [Concomitant]
  14. INEXIUM  /01479302/ [Concomitant]

REACTIONS (8)
  - Thrombocytopenia [None]
  - Generalised erythema [None]
  - Pyrexia [None]
  - Purpura [None]
  - Rash [None]
  - Haemoglobin decreased [None]
  - Histiocytosis haematophagic [None]
  - Bacterial infection [None]
